FAERS Safety Report 7929514-4 (Version None)
Quarter: 2011Q4

REPORT INFORMATION
  Report Type: 
  Country: None (occurrence: None)
  Receive Date: 20111121
  Receipt Date: 20111108
  Transmission Date: 20120403
  Serious: Yes (Hospitalization, Other)
  Sender: FDA-Public Use
  Company Number: PL-ELI_LILLY_AND_COMPANY-PL201111000905

PATIENT
  Age: 40 Year
  Sex: Female

DRUGS (2)
  1. OLANZAPINE [Suspect]
     Dosage: 280 MG, UNK
  2. OLANZAPINE [Suspect]
     Dosage: UNK, UNKNOWN

REACTIONS (6)
  - HYPOKALAEMIA [None]
  - ELECTROCARDIOGRAM QT PROLONGED [None]
  - TOXICITY TO VARIOUS AGENTS [None]
  - HYPONATRAEMIA [None]
  - OVERDOSE [None]
  - ELECTROCARDIOGRAM QT INTERVAL [None]
